FAERS Safety Report 9704426 (Version 1)
Quarter: 2013Q4

REPORT INFORMATION
  Report Type: Spontaneous
  Country: NL (occurrence: NL)
  Receive Date: 20131122
  Receipt Date: 20131122
  Transmission Date: 20140711
  Serious: Yes (Death, Hospitalization)
  Sender: FDA-Public Use
  Company Number: PHHY2013NL132673

PATIENT
  Age: 71 Year
  Sex: Male

DRUGS (5)
  1. GLIMEPIRIDE [Suspect]
  2. SPIRONOLACTONE [Suspect]
  3. BUMETANIDE [Suspect]
  4. INSULIN [Suspect]
  5. DABIGATRAN [Concomitant]
     Indication: ATRIAL FIBRILLATION

REACTIONS (3)
  - Renal failure acute [Fatal]
  - Hyperkalaemia [Fatal]
  - Hypoglycaemia [Recovered/Resolved]
